FAERS Safety Report 12222398 (Version 1)
Quarter: 2016Q1

REPORT INFORMATION
  Report Type: Spontaneous
  Country: US (occurrence: US)
  Receive Date: 20160321
  Receipt Date: 20160321
  Transmission Date: 20160526
  Serious: Yes (Hospitalization)
  Sender: FDA-Public Use
  Company Number: US-RELYPSA-RLY2016000140

PATIENT

DRUGS (19)
  1. LATANOPROST. [Concomitant]
     Active Substance: LATANOPROST
  2. TORSEMIDE. [Concomitant]
     Active Substance: TORSEMIDE
  3. LEVOTHYROXINE SODIUM. [Concomitant]
     Active Substance: LEVOTHYROXINE SODIUM
  4. NOVOLOG [Concomitant]
     Active Substance: INSULIN ASPART
  5. VELTASSA [Suspect]
     Active Substance: PATIROMER
     Indication: HYPERKALAEMIA
     Dosage: 8.4 G, QD
     Route: 048
     Dates: start: 20160203, end: 201602
  6. VELTASSA [Suspect]
     Active Substance: PATIROMER
     Dosage: UNK
     Dates: start: 20160302
  7. ALLOPURINOL. [Concomitant]
     Active Substance: ALLOPURINOL
  8. LANTUS [Concomitant]
     Active Substance: INSULIN GLARGINE
  9. PREDNISONE. [Concomitant]
     Active Substance: PREDNISONE
  10. XALATAN [Concomitant]
     Active Substance: LATANOPROST
  11. VITAMIN D3 [Concomitant]
     Active Substance: CHOLECALCIFEROL
  12. PROGRAF [Concomitant]
     Active Substance: TACROLIMUS\TACROLIMUS ANHYDROUS
  13. ASPIRIN                            /00002701/ [Concomitant]
     Active Substance: ASPIRIN
  14. CARVEDILOL. [Concomitant]
     Active Substance: CARVEDILOL
  15. TIMOLOL MALEATE. [Concomitant]
     Active Substance: TIMOLOL MALEATE
  16. SODIUM BICARBONATE. [Concomitant]
     Active Substance: SODIUM BICARBONATE
     Dosage: UNK, TID
  17. MULTIVITAMINS [Concomitant]
     Active Substance: VITAMINS
  18. ATORVASTATIN CALCIUM. [Concomitant]
     Active Substance: ATORVASTATIN CALCIUM
  19. AMLODIPINE BESYLATE. [Concomitant]
     Active Substance: AMLODIPINE BESYLATE

REACTIONS (1)
  - Blood potassium increased [Unknown]

NARRATIVE: CASE EVENT DATE: 20160223
